FAERS Safety Report 4630853-3 (Version None)
Quarter: 2005Q2

REPORT INFORMATION
  Report Type: 
  Country: None (occurrence: None)
  Receive Date: 20050404
  Receipt Date: 20050404
  Transmission Date: 20051028
  Serious: Yes (Hospitalization)
  Sender: FDA-Public Use
  Company Number: None

PATIENT
  Age: 66 Year
  Sex: Female
  Weight: 65.5448 kg

DRUGS (3)
  1. CARBOPLATIN [Suspect]
     Indication: LUNG NEOPLASM MALIGNANT
     Dosage: 327 MG/ IV / 1 DAY
     Route: 042
     Dates: start: 20050111
  2. ETOPOSIDE [Suspect]
     Dosage: 190 MG / IV/ 3 DAYS
     Route: 042
     Dates: start: 20050111, end: 20050113
  3. RADIATION THERAPY [Concomitant]

REACTIONS (1)
  - FEBRILE NEUTROPENIA [None]
